FAERS Safety Report 14169755 (Version 1)
Quarter: 2017Q4

REPORT INFORMATION
  Report Type: Spontaneous
  Country: RU (occurrence: RU)
  Receive Date: 20171108
  Receipt Date: 20171108
  Transmission Date: 20180321
  Serious: Yes (Hospitalization, Other)
  Sender: FDA-Public Use
  Company Number: RU-BAYER-2017-211192

PATIENT
  Age: 70 Year
  Sex: Female

DRUGS (2)
  1. ACETYLSALICYLIC ACID({=100 MG) [Suspect]
     Active Substance: ASPIRIN
     Dosage: UNK
     Route: 048
  2. XARELTO [Suspect]
     Active Substance: RIVAROXABAN
     Indication: ATRIAL FIBRILLATION
     Dosage: 20 MG, QD
     Route: 048
     Dates: start: 201606, end: 20171020

REACTIONS (6)
  - Hemiparesis [None]
  - Speech disorder [None]
  - Pulmonary oedema [None]
  - Fall [None]
  - Ischaemic stroke [None]
  - Product quality issue [None]

NARRATIVE: CASE EVENT DATE: 20171020
